FAERS Safety Report 5251258-0 (Version None)
Quarter: 2007Q1

REPORT INFORMATION
  Report Type: 
  Country: None (occurrence: None)
  Receive Date: 20070228
  Receipt Date: 20070207
  Transmission Date: 20070707
  Serious: No
  Sender: FDA-Public Use
  Company Number: US-GLAXOSMITHKLINE-A0631945A

PATIENT
  Age: 59 Year
  Sex: Female
  Weight: 90.9 kg

DRUGS (2)
  1. LAMICTAL [Suspect]
     Indication: BIPOLAR DISORDER
     Dosage: 100MG PER DAY
     Route: 048
     Dates: start: 20061108, end: 20061211
  2. PROZAC [Concomitant]

REACTIONS (7)
  - HEADACHE [None]
  - LYMPHADENOPATHY [None]
  - NASAL CONGESTION [None]
  - RASH [None]
  - SLEEP DISORDER [None]
  - TONGUE BLISTERING [None]
  - VISION BLURRED [None]
